FAERS Safety Report 25026309 (Version 1)
Quarter: 2025Q1

REPORT INFORMATION
  Report Type: Spontaneous
  Country: PT (occurrence: PT)
  Receive Date: 20250301
  Receipt Date: 20250301
  Transmission Date: 20250409
  Serious: Yes (Other)
  Sender: AUROBINDO
  Company Number: PT-MLMSERVICE-20250207-PI399724-00322-1

PATIENT
  Age: 58 Year
  Sex: Female

DRUGS (9)
  1. VENLAFAXINE [Interacting]
     Active Substance: VENLAFAXINE HYDROCHLORIDE
     Indication: Major depression
     Dosage: 75 MILLIGRAM, ONCE A DAY
     Route: 065
  2. VENLAFAXINE [Interacting]
     Active Substance: VENLAFAXINE HYDROCHLORIDE
     Dosage: 150 MILLIGRAM, ONCE A DAY
     Route: 065
  3. TRAMADOL [Interacting]
     Active Substance: TRAMADOL
     Indication: Neuralgia
     Dosage: 50 MILLIGRAM, TWO TIMES A DAY
     Route: 065
  4. TRAMADOL [Interacting]
     Active Substance: TRAMADOL
     Dosage: 100 MILLIGRAM, ONCE A DAY
     Route: 065
  5. ZOLPIDEM [Concomitant]
     Active Substance: ZOLPIDEM TARTRATE
     Indication: Product used for unknown indication
     Route: 065
  6. LETROZOLE [Concomitant]
     Active Substance: LETROZOLE
     Indication: Product used for unknown indication
     Route: 065
  7. PREGABALIN [Concomitant]
     Active Substance: PREGABALIN
     Indication: Product used for unknown indication
     Dosage: 50 MILLIGRAM, TWO TIMES A DAY
     Route: 065
  8. PREGABALIN [Concomitant]
     Active Substance: PREGABALIN
     Dosage: 100 MILLIGRAM, ONCE A DAY
     Route: 065
  9. DIAZEPAM [Concomitant]
     Active Substance: DIAZEPAM
     Indication: Product used for unknown indication
     Route: 065

REACTIONS (8)
  - Serotonin syndrome [Recovered/Resolved]
  - Drug interaction [Recovered/Resolved]
  - Tremor [Unknown]
  - Hyperreflexia [Unknown]
  - Diarrhoea [Unknown]
  - Tachycardia [Unknown]
  - Hypertension [Unknown]
  - Pyrexia [Unknown]
